FAERS Safety Report 7574922-7 (Version None)
Quarter: 2011Q2

REPORT INFORMATION
  Report Type: 
  Country: None (occurrence: None)
  Receive Date: 20110627
  Receipt Date: 20101210
  Transmission Date: 20111010
  Serious: Yes (Hospitalization, Other)
  Sender: FDA-Public Use
  Company Number: US-BAYER-2010-003196

PATIENT
  Age: 81 Year
  Sex: Female

DRUGS (1)
  1. BETASERON [Suspect]
     Indication: SECONDARY PROGRESSIVE MULTIPLE SCLEROSIS
     Dosage: 8 MIU QOD
     Route: 058
     Dates: start: 19990409

REACTIONS (9)
  - CONFUSIONAL STATE [None]
  - LOCALISED INFECTION [None]
  - INJECTION SITE ERYTHEMA [None]
  - URINARY TRACT INFECTION [None]
  - CYSTITIS [None]
  - ABDOMINAL DISTENSION [None]
  - INJECTION SITE INFECTION [None]
  - DECREASED APPETITE [None]
  - LETHARGY [None]
